FAERS Safety Report 23097970 (Version 1)
Quarter: 2023Q4

REPORT INFORMATION
  Report Type: Spontaneous
  Country: US (occurrence: None)
  Receive Date: 20231020
  Receipt Date: 20231020
  Transmission Date: 20240110
  Serious: Yes (Hospitalization)
  Sender: FDA-Public Use
  Company Number: None

PATIENT
  Age: 75 Year
  Sex: Male

DRUGS (2)
  1. BACLOFEN [Suspect]
     Active Substance: BACLOFEN
     Dates: start: 20230306, end: 20230316
  2. GABAPENTIN [Suspect]
     Active Substance: GABAPENTIN
     Dates: start: 20221225, end: 20230316

REACTIONS (7)
  - Confusional state [None]
  - Amnesia [None]
  - Urinary retention [None]
  - Renal impairment [None]
  - Therapy cessation [None]
  - Toxic encephalopathy [None]
  - Wernicke^s encephalopathy [None]

NARRATIVE: CASE EVENT DATE: 20230308
